FAERS Safety Report 4913774-8 (Version None)
Quarter: 2006Q1

REPORT INFORMATION
  Report Type: 
  Country: None (occurrence: None)
  Receive Date: 20060216
  Receipt Date: 20050927
  Transmission Date: 20060701
  Serious: Yes (Disabling)
  Sender: FDA-Public Use
  Company Number: JP-JPN-A20052296

PATIENT
  Age: 69 Year
  Sex: Female
  Weight: 46 kg

DRUGS (19)
  1. FLUTIDE DISKUS [Suspect]
     Indication: ASTHMA
     Dosage: 1U TWICE PER DAY
     Route: 048
     Dates: start: 20041119, end: 20050409
  2. ONON [Concomitant]
     Indication: ASTHMA
     Dosage: 4U PER DAY
     Route: 048
     Dates: start: 20041217
  3. SEREVENT [Concomitant]
     Indication: ASTHMA
     Dosage: 2U PER DAY
     Route: 055
     Dates: start: 20041119, end: 20050407
  4. CLONAZEPAM [Concomitant]
     Indication: BIPOLAR I DISORDER
     Dosage: 1U PER DAY
     Route: 048
  5. ATARAX [Concomitant]
     Indication: BIPOLAR I DISORDER
     Dosage: 1U PER DAY
     Route: 048
  6. DEPAS [Concomitant]
     Indication: BIPOLAR I DISORDER
     Dosage: 1U PER DAY
     Route: 048
  7. LITHIUM CARBONATE [Concomitant]
     Indication: BIPOLAR I DISORDER
     Dosage: 2U PER DAY
     Route: 048
  8. LANDSEN [Concomitant]
     Indication: BIPOLAR I DISORDER
     Dosage: 4U PER DAY
     Route: 048
  9. EBASTEL [Concomitant]
     Dosage: 1U PER DAY
     Route: 048
  10. LAC B [Concomitant]
     Indication: CONSTIPATION
     Dosage: 3G PER DAY
     Route: 048
  11. METOCLOPRAMIDE [Concomitant]
     Indication: CONSTIPATION
     Dosage: .75G PER DAY
     Route: 048
  12. GASMOTIN [Concomitant]
     Indication: CONSTIPATION
     Dosage: 1.5G PER DAY
     Route: 048
  13. DIMETICONE [Concomitant]
     Indication: CONSTIPATION
     Dosage: 1.2G PER DAY
     Route: 048
  14. MAGNESIUM OXIDE [Concomitant]
     Indication: CONSTIPATION
     Dosage: 3G PER DAY
     Route: 048
  15. PANTOSIN [Concomitant]
     Indication: CONSTIPATION
     Dosage: 3G PER DAY
     Route: 048
  16. JUVELA N [Concomitant]
     Indication: PERIPHERAL VASCULAR DISORDER
     Dosage: 1.5G PER DAY
     Route: 048
  17. SODIUM PICOSULFATE [Concomitant]
     Indication: CONSTIPATION
     Dosage: 1U PER DAY
     Route: 048
  18. SODIUM PICOSULFATE [Concomitant]
     Dosage: 1ML PER DAY
     Route: 048
  19. FLAVERIC [Concomitant]
     Indication: ASTHMA
     Dosage: 1U PER DAY
     Route: 048
     Dates: start: 20050325, end: 20050331

REACTIONS (4)
  - ORAL CANDIDIASIS [None]
  - PNEUMONIA [None]
  - PULMONARY TUBERCULOSIS [None]
  - PYREXIA [None]
